FAERS Safety Report 6328217-X (Version None)
Quarter: 2009Q3

REPORT INFORMATION
  Report Type: 
  Country: None (occurrence: None)
  Receive Date: 20090825
  Receipt Date: 20081209
  Transmission Date: 20100115
  Serious: No
  Sender: FDA-Public Use
  Company Number: US-ABBOTT-08P-163-0492573-00

PATIENT
  Sex: Female

DRUGS (3)
  1. SYNTHROID [Suspect]
     Indication: DRUG USE FOR UNKNOWN INDICATION
     Dosage: DAILY
     Route: 048
     Dates: start: 20081123, end: 20081123
  2. LEVOXYL [Concomitant]
     Indication: HYPOTHYROIDISM
     Dosage: DAILY
     Route: 048
     Dates: start: 20000101, end: 20081122
  3. LEVOXYL [Concomitant]
     Dosage: DAILY
     Route: 048
     Dates: start: 20081125

REACTIONS (2)
  - NERVOUSNESS [None]
  - PAROSMIA [None]
